FAERS Safety Report 23280943 (Version 2)
Quarter: 2024Q1

REPORT INFORMATION
  Report Type: Spontaneous
  Country: US (occurrence: US)
  Receive Date: 20231211
  Receipt Date: 20240320
  Transmission Date: 20240409
  Serious: No
  Sender: FDA-Public Use
  Company Number: US-NOVEN PHARMACEUTICALS, INC.-2023-NOV-US000597

PATIENT
  Age: 58 Year
  Sex: Female
  Weight: 76.998 kg

DRUGS (2)
  1. ESTRADIOL [Suspect]
     Active Substance: ESTRADIOL
     Indication: Artificial menopause
     Dosage: 0.075 MG, TWICE WEEKLY (ON SATURDAY AND TUESDAY)
     Route: 062
  2. HUMAN HEMATOPOIETIC PROGENITOR CELLS [Concomitant]
     Active Substance: HUMAN HEMATOPOIETIC PROGENITOR CELLS
     Indication: Weight decreased
     Dosage: UNKNOWN
     Route: 065
     Dates: start: 202301

REACTIONS (8)
  - Hot flush [Unknown]
  - Dermal absorption impaired [Recovered/Resolved]
  - Product dose omission issue [Recovered/Resolved]
  - Accidental exposure to product [Recovered/Resolved]
  - Adhesive tape use [Recovered/Resolved]
  - Wrong technique in product usage process [Recovered/Resolved]
  - Device difficult to use [Recovered/Resolved]
  - Product adhesion issue [Recovered/Resolved]

NARRATIVE: CASE EVENT DATE: 20230101
